FAERS Safety Report 10091940 (Version 2)
Quarter: 2014Q2

REPORT INFORMATION
  Report Type: Spontaneous
  Country: US (occurrence: US)
  Receive Date: 20140421
  Receipt Date: 20140421
  Transmission Date: 20141212
  Serious: No
  Sender: FDA-Public Use
  Company Number: US-GILEAD-2013-0070435

PATIENT
  Sex: Female

DRUGS (3)
  1. LETAIRIS [Suspect]
     Indication: COR PULMONALE CHRONIC
     Dosage: 5 MG, QD
     Dates: start: 20130116
  2. REVATIO [Concomitant]
     Indication: PRODUCT USED FOR UNKNOWN INDICATION
  3. TYVASO [Concomitant]

REACTIONS (3)
  - Dyspnoea [Unknown]
  - Vomiting [Unknown]
  - Oedema [Unknown]
